FAERS Safety Report 9167407 (Version 1)
Quarter: 2013Q1

REPORT INFORMATION
  Report Type: Spontaneous
  Country: US (occurrence: None)
  Receive Date: 20130304
  Receipt Date: 20130304
  Transmission Date: 20140127
  Serious: Yes (Hospitalization)
  Sender: FDA-Public Use
  Company Number: AMAG201300040

PATIENT
  Age: 47 Year
  Sex: Female
  Weight: 131.5 kg

DRUGS (1)
  1. FERAHEME (FERUMOXYTOL) INJECTION, 510MG [Suspect]
     Indication: ANAEMIA
     Route: 042
     Dates: start: 20130213, end: 20130213

REACTIONS (7)
  - Dyspnoea [None]
  - Urticaria [None]
  - Nausea [None]
  - Decreased appetite [None]
  - Pollakiuria [None]
  - Dehydration [None]
  - Liver function test abnormal [None]
